FAERS Safety Report 7498515-5 (Version None)
Quarter: 2011Q2

REPORT INFORMATION
  Report Type: 
  Country: None (occurrence: None)
  Receive Date: 20110516
  Receipt Date: 20110429
  Transmission Date: 20111010
  Serious: Yes (Hospitalization)
  Sender: FDA-Public Use
  Company Number: 1000019082

PATIENT
  Age: 78 Year
  Sex: Female
  Weight: 61 kg

DRUGS (9)
  1. MEMANTINE [Suspect]
     Indication: DEMENTIA ALZHEIMER'S TYPE
     Dosage: UP TITRATE FROM 5 MG UP TO 15 MG (5 MG, 1 IN 1 D), ORAL, 20 MG (20 MG, 1 IN 1 D), ORAL
     Route: 048
     Dates: start: 20100416
  2. MEMANTINE [Suspect]
     Indication: DEMENTIA ALZHEIMER'S TYPE
     Dosage: UP TITRATE FROM 5 MG UP TO 15 MG (5 MG, 1 IN 1 D), ORAL, 20 MG (20 MG, 1 IN 1 D), ORAL
     Route: 048
     Dates: start: 20100507, end: 20100602
  3. RAMIPRIL [Concomitant]
  4. REMINYL (GALANTAMINE) (CAPSULES) [Suspect]
     Indication: DEPRESSION
     Dosage: 16 MG,
     Dates: start: 20081001, end: 20100602
  5. REMINYL (GALANTAMINE) (CAPSULES) [Suspect]
     Indication: DEMENTIA
     Dosage: 16 MG,
     Dates: start: 20081001, end: 20100602
  6. BETAHISTIN (BETAHISTINE HYDROCHLORIDE) [Concomitant]
  7. SIMVASTATIN [Concomitant]
  8. LEVOMEPROMAZINE (LEVOPROMAZINE MALEATE) [Concomitant]
  9. ATENOLOL [Concomitant]

REACTIONS (2)
  - AGITATION [None]
  - DISORIENTATION [None]
